FAERS Safety Report 4614077-1 (Version None)
Quarter: 2005Q1

REPORT INFORMATION
  Report Type: 
  Country: None (occurrence: None)
  Receive Date: 20050316
  Receipt Date: 20050228
  Transmission Date: 20050727
  Serious: Yes (Death, Other)
  Sender: FDA-Public Use
  Company Number: GBS050316782

PATIENT
  Age: 48 Year
  Sex: Male

DRUGS (3)
  1. XIGRIS [Suspect]
     Dates: start: 20050228, end: 20050228
  2. ADRENALINE [Concomitant]
  3. NORADRENALINE [Concomitant]

REACTIONS (2)
  - ACTIVATED PARTIAL THROMBOPLASTIN TIME PROLONGED [None]
  - PROTHROMBIN TIME PROLONGED [None]
